FAERS Safety Report 6253597-3 (Version None)
Quarter: 2009Q2

REPORT INFORMATION
  Report Type: 
  Country: None (occurrence: None)
  Receive Date: 20090630
  Receipt Date: 20090617
  Transmission Date: 20091009
  Serious: Yes (Death)
  Sender: FDA-Public Use
  Company Number: A-US2009-25944

PATIENT
  Age: 83 Year
  Sex: Female

DRUGS (14)
  1. TRACLEER [Suspect]
     Indication: PULMONARY ARTERIAL HYPERTENSION
     Dosage: 125 MG, BID, ORAL
     Route: 048
     Dates: start: 20090507, end: 20090610
  2. COMBIVENT [Concomitant]
  3. VITAMINS [Concomitant]
  4. ADVAIR DISKUS 100/50 [Concomitant]
  5. ALBUTEROL SULFATE [Concomitant]
  6. OXYGEN (OXYGEN) [Concomitant]
  7. POTASSIUM CHLORIDE [Concomitant]
  8. TESSALON [Concomitant]
  9. FUROSEMIDE [Concomitant]
  10. METOLAZONE [Concomitant]
  11. SPIRIVA [Concomitant]
  12. MUCINEX [Concomitant]
  13. LISINOPRIL [Concomitant]
  14. IPRATROPIUM BR (IPRATROPIUM BROMIDE) [Concomitant]

REACTIONS (10)
  - AMNESIA [None]
  - ANOREXIA [None]
  - ASTHENIA [None]
  - COUGH [None]
  - DYSPHAGIA [None]
  - DYSPNOEA [None]
  - FATIGUE [None]
  - HEPATIC NEOPLASM MALIGNANT [None]
  - OEDEMA PERIPHERAL [None]
  - WHEEZING [None]
